FAERS Safety Report 12105977 (Version 1)
Quarter: 2016Q1

REPORT INFORMATION
  Report Type: Spontaneous
  Country: DK (occurrence: DK)
  Receive Date: 20160223
  Receipt Date: 20160223
  Transmission Date: 20160526
  Serious: Yes (Other)
  Sender: FDA-Public Use
  Company Number: DK-BAXTER-2016BAX002766

PATIENT
  Sex: Female

DRUGS (1)
  1. PHOXILIUM [Suspect]
     Active Substance: CALCIUM CHLORIDE\MAGNESIUM CHLORIDE\POTASSIUM CHLORIDE\SODIUM BICARBONATE\SODIUM CHLORIDE\SODIUM PHOSPHATE, DIBASIC
     Indication: OCCUPATIONAL EXPOSURE TO PRODUCT
     Route: 003

REACTIONS (3)
  - Occupational exposure to product [Recovered/Resolved]
  - Superficial injury of eye [Recovered/Resolved]
  - Accident at work [Recovered/Resolved]
